FAERS Safety Report 21047056 (Version 1)
Quarter: 2022Q3

REPORT INFORMATION
  Report Type: Spontaneous
  Country: GB (occurrence: GB)
  Receive Date: 20220706
  Receipt Date: 20220706
  Transmission Date: 20221027
  Serious: Yes (Other)
  Sender: FDA-Public Use
  Company Number: GB-MYLANLABS-2022M1044646

PATIENT
  Sex: Male

DRUGS (1)
  1. CLOZARIL [Suspect]
     Active Substance: CLOZAPINE
     Indication: Schizophrenia
     Dosage: UNK
     Route: 048
     Dates: start: 20090706

REACTIONS (6)
  - Schizophrenia [Unknown]
  - Therapy interrupted [Unknown]
  - Treatment noncompliance [Unknown]
  - Antipsychotic drug level decreased [Unknown]
  - Mental disorder [Unknown]
  - Confusional state [Unknown]
